FAERS Safety Report 20775244 (Version 1)
Quarter: 2022Q2

REPORT INFORMATION
  Report Type: Spontaneous
  Country: US (occurrence: None)
  Receive Date: 20220502
  Receipt Date: 20220502
  Transmission Date: 20220720
  Serious: No
  Sender: FDA-Public Use
  Company Number: None

PATIENT
  Age: 54 Year
  Sex: Female

DRUGS (1)
  1. AMBRISENTAN [Suspect]
     Active Substance: AMBRISENTAN
     Indication: Pulmonary arterial hypertension
     Dosage: FREQUENCY : DAILY;?
     Route: 048
     Dates: start: 20190514

REACTIONS (5)
  - Complication associated with device [None]
  - Device dislocation [None]
  - Surgical procedure repeated [None]
  - Central venous catheterisation [None]
  - Device delivery system issue [None]

NARRATIVE: CASE EVENT DATE: 20220428
